FAERS Safety Report 21548152 (Version 1)
Quarter: 2022Q4

REPORT INFORMATION
  Report Type: Spontaneous
  Country: FR (occurrence: FR)
  Receive Date: 20221103
  Receipt Date: 20221103
  Transmission Date: 20230113
  Serious: Yes (Other)
  Sender: FDA-Public Use
  Company Number: FR-PFIZER INC-202201136613

PATIENT
  Age: 69 Year
  Sex: Male

DRUGS (2)
  1. CLOFARABINE [Suspect]
     Active Substance: CLOFARABINE
     Indication: Acute myeloid leukaemia
     Dosage: UNK
     Route: 065
     Dates: start: 20220506
  2. CYTARABINE [Suspect]
     Active Substance: CYTARABINE
     Indication: Acute myeloid leukaemia
     Dosage: UNK
     Route: 065
     Dates: start: 20220506

REACTIONS (8)
  - Bacterial sepsis [Unknown]
  - Proteus infection [Unknown]
  - Catheter site infection [Unknown]
  - Hypervolaemia [Unknown]
  - Neoplasm progression [Unknown]
  - Sinus tachycardia [Recovered/Resolved]
  - Pyrexia [Recovered/Resolved]
  - Diarrhoea [Recovering/Resolving]

NARRATIVE: CASE EVENT DATE: 20220506
